FAERS Safety Report 7098859-5 (Version None)
Quarter: 2010Q4

REPORT INFORMATION
  Report Type: 
  Country: None (occurrence: None)
  Receive Date: 20101104
  Receipt Date: 20101022
  Transmission Date: 20110411
  Serious: Yes (Disabling)
  Sender: FDA-Public Use
  Company Number: ACO_20004_2010

PATIENT
  Age: 56 Year
  Sex: Female
  Weight: 48.5 kg

DRUGS (4)
  1. AMPYRA [Suspect]
     Indication: GAIT DISTURBANCE
     Dosage: 10 MG, BID, ORAL
     Route: 048
     Dates: start: 20101017
  2. KLONOPIN [Concomitant]
  3. PROVIGIL [Concomitant]
  4. ROZEREM [Concomitant]

REACTIONS (3)
  - BACK PAIN [None]
  - BALANCE DISORDER [None]
  - MOBILITY DECREASED [None]
